FAERS Safety Report 17543146 (Version 1)
Quarter: 2020Q1

REPORT INFORMATION
  Report Type: Report from Study
  Country: None (occurrence: CL)
  Receive Date: 20200316
  Receipt Date: 20200316
  Transmission Date: 20200409
  Serious: Yes (Hospitalization, Other)
  Sender: FDA-Public Use
  Company Number: CL-ABBVIE-20K-034-3319910-00

PATIENT
  Age: 59 Year
  Sex: Female

DRUGS (1)
  1. HUMIRA [Suspect]
     Active Substance: ADALIMUMAB
     Indication: RHEUMATOID ARTHRITIS
     Route: 058
     Dates: start: 20180531

REACTIONS (5)
  - Mobility decreased [Unknown]
  - Sepsis [Recovering/Resolving]
  - Intervertebral disc disorder [Unknown]
  - Respiratory disorder [Not Recovered/Not Resolved]
  - Paraplegia [Unknown]

NARRATIVE: CASE EVENT DATE: 202001
